FAERS Safety Report 7150370-9 (Version None)
Quarter: 2010Q4

REPORT INFORMATION
  Report Type: 
  Country: None (occurrence: None)
  Receive Date: 20101210
  Receipt Date: 20101206
  Transmission Date: 20110411
  Serious: Yes (Other)
  Sender: FDA-Public Use
  Company Number: US-SANOFI-AVENTIS-2010SA039131

PATIENT
  Age: 55 Year
  Sex: Male
  Weight: 115.91 kg

DRUGS (21)
  1. AMBIEN [Suspect]
     Route: 048
     Dates: start: 20050221, end: 20090901
  2. ZOLPIDEM TARTRATE [Suspect]
     Route: 048
     Dates: start: 20080703
  3. VALPROIC ACID [Concomitant]
     Indication: DEPRESSION
  4. SERTRALINE [Concomitant]
  5. BUPROPION [Concomitant]
  6. MORPHINE SULFATE [Concomitant]
  7. LISINOPRIL [Concomitant]
  8. ALLOPURINOL [Concomitant]
  9. OXYCODONE HCL [Concomitant]
  10. METHYLPHENIDATE [Concomitant]
  11. SUMATRIPTAN [Concomitant]
  12. DEPAKOTE [Concomitant]
     Indication: DEPRESSION
     Route: 065
  13. ZOLOFT [Concomitant]
     Indication: DEPRESSION
  14. ADALAT CC [Concomitant]
  15. METHADONE [Concomitant]
     Indication: BACK INJURY
  16. KETOPROFEN [Concomitant]
     Indication: BACK INJURY
  17. IMIPRAMINE [Concomitant]
     Indication: BACK INJURY
  18. ULTRAM [Concomitant]
     Indication: BACK INJURY
  19. NASAL SPRAY [Concomitant]
  20. TEMAZEPAM [Concomitant]
  21. QUININE [Concomitant]

REACTIONS (7)
  - COMPRESSION FRACTURE [None]
  - FALL [None]
  - MUSCULOSKELETAL PAIN [None]
  - NECK PAIN [None]
  - PAIN IN EXTREMITY [None]
  - ROTATOR CUFF SYNDROME [None]
  - SOMNAMBULISM [None]
